FAERS Safety Report 7261620-2 (Version None)
Quarter: 2011Q1

REPORT INFORMATION
  Report Type: 
  Country: None (occurrence: None)
  Receive Date: 20110124
  Receipt Date: 20110124
  Transmission Date: 20110831
  Serious: Yes (Other)
  Sender: FDA-Public Use
  Company Number: None

PATIENT
  Age: 7 Year
  Sex: Female
  Weight: 25.4014 kg

DRUGS (2)
  1. RELI ON ALCOHOL SWABS WITH PAIN TRAID GROUP [Suspect]
     Indication: DIABETES MELLITUS
     Dosage: 1 WIPE 10 TIMES OTHER
     Route: 050
     Dates: start: 20100518, end: 20110106
  2. RELI ON ALCOHOL SWABS WITH PAIN TRAID GROUP [Suspect]

REACTIONS (2)
  - OEDEMA PERIPHERAL [None]
  - PRODUCT QUALITY ISSUE [None]
